FAERS Safety Report 6652485-8 (Version None)
Quarter: 2010Q1

REPORT INFORMATION
  Report Type: 
  Country: None (occurrence: None)
  Receive Date: 20100323
  Receipt Date: 20100310
  Transmission Date: 20100710
  Serious: Yes (Other)
  Sender: FDA-Public Use
  Company Number: 2010AP000388

PATIENT
  Age: 74 Year
  Sex: Male

DRUGS (14)
  1. RAMIPRIL [Suspect]
     Dosage: 1.25 MG;PO;QD
     Route: 048
     Dates: start: 20071128, end: 20100203
  2. ARANESP [Suspect]
     Indication: RENAL FAILURE CHRONIC
     Dosage: 20 UG;SC;QW ; 40 UG;SC;QW ; 40 UG;SC ; 40 UG;SC;QOW
     Route: 058
     Dates: start: 20090115, end: 20100203
  3. ARANESP [Suspect]
     Indication: RENAL FAILURE CHRONIC
     Dosage: 20 UG;SC;QW ; 40 UG;SC;QW ; 40 UG;SC ; 40 UG;SC;QOW
     Route: 058
     Dates: start: 20080205
  4. ARANESP [Suspect]
     Indication: RENAL FAILURE CHRONIC
     Dosage: 20 UG;SC;QW ; 40 UG;SC;QW ; 40 UG;SC ; 40 UG;SC;QOW
     Route: 058
     Dates: start: 20080915
  5. ARANESP [Suspect]
     Indication: RENAL FAILURE CHRONIC
     Dosage: 20 UG;SC;QW ; 40 UG;SC;QW ; 40 UG;SC ; 40 UG;SC;QOW
     Route: 058
     Dates: start: 20091028
  6. FLUOROURACIL [Concomitant]
  7. ATORVASTATIN CALCIUM [Concomitant]
  8. CYCLOPHOSPHAMIDE [Concomitant]
  9. DEXAMETHASONE [Concomitant]
  10. RANITIDINE [Concomitant]
  11. WARFARIN SODIUM [Concomitant]
  12. MELPHALAN HYDROCHLORIDE [Concomitant]
  13. THALIDOMIDE [Concomitant]
  14. ERGOCALCIFEROL [Concomitant]

REACTIONS (5)
  - BONE MARROW FAILURE [None]
  - CONDITION AGGRAVATED [None]
  - DRUG INEFFECTIVE [None]
  - HYPERPARATHYROIDISM [None]
  - PARAPROTEINAEMIA [None]
